FAERS Safety Report 7058783-0 (Version None)
Quarter: 2010Q4

REPORT INFORMATION
  Report Type: 
  Country: None (occurrence: None)
  Receive Date: 20101022
  Receipt Date: 20101013
  Transmission Date: 20110411
  Serious: Yes (Other)
  Sender: FDA-Public Use
  Company Number: US-WYE-H18190810

PATIENT
  Sex: Female
  Weight: 77.18 kg

DRUGS (5)
  1. EFFEXOR XR [Suspect]
     Indication: DEPRESSION
     Dosage: UNKNOWN DOSE, THEN DOSE WAS INCREASED TO UNKNOWN AMOUNT
  2. EFFEXOR XR [Suspect]
     Indication: SUICIDAL IDEATION
  3. ZOLOFT [Suspect]
     Indication: DEPRESSION
     Dosage: UNKNOWN DOSE
  4. ZOLOFT [Suspect]
     Indication: SUICIDAL IDEATION
  5. VITAMINS [Concomitant]

REACTIONS (8)
  - ASTHENIA [None]
  - DRUG EFFECT DECREASED [None]
  - MENSTRUATION IRREGULAR [None]
  - MUSCLE SPASMS [None]
  - PHOTOPHOBIA [None]
  - SINUS HEADACHE [None]
  - SUICIDAL IDEATION [None]
  - VISUAL IMPAIRMENT [None]
